FAERS Safety Report 23148877 (Version 1)
Quarter: 2023Q4

REPORT INFORMATION
  Report Type: Spontaneous
  Country: US (occurrence: None)
  Receive Date: 20231103
  Receipt Date: 20231103
  Transmission Date: 20240109
  Serious: Yes (Death)
  Sender: FDA-Public Use
  Company Number: None

PATIENT
  Age: 65 Year
  Sex: Female
  Weight: 94.4 kg

DRUGS (4)
  1. ENFORTUMAB VEDOTIN [Suspect]
     Active Substance: ENFORTUMAB VEDOTIN
     Indication: Bladder transitional cell carcinoma metastatic
     Dosage: OTHER FREQUENCY : DAY 1 AND 8;?
     Route: 042
     Dates: start: 20231016, end: 20231023
  2. ENFORTUMAB [Concomitant]
     Active Substance: ENFORTUMAB
     Dates: start: 20231016, end: 20231016
  3. PEMBROLIZUMAB [Concomitant]
     Active Substance: PEMBROLIZUMAB
     Dates: start: 20231016, end: 20231016
  4. ENFORTUMAB [Concomitant]
     Active Substance: ENFORTUMAB
     Dates: start: 20231023, end: 20231023

REACTIONS (11)
  - Haematuria [None]
  - Pruritus [None]
  - Scratch [None]
  - Decreased appetite [None]
  - Dysphagia [None]
  - Drug ineffective [None]
  - Abdominal pain [None]
  - Hypophagia [None]
  - Dermatitis exfoliative [None]
  - Stevens-Johnson syndrome [None]
  - Toxic epidermal necrolysis [None]

NARRATIVE: CASE EVENT DATE: 20231023
